FAERS Safety Report 4462058-3 (Version None)
Quarter: 2004Q3

REPORT INFORMATION
  Report Type: 
  Country: None (occurrence: None)
  Receive Date: 20040929
  Receipt Date: 20040812
  Transmission Date: 20050211
  Serious: Yes (Other)
  Sender: FDA-Public Use
  Company Number: US-AMGEN-KDL087092

PATIENT
  Sex: Female

DRUGS (8)
  1. ENBREL [Suspect]
     Indication: PSORIASIS
     Route: 058
     Dates: start: 20040701
  2. LIPITOR [Concomitant]
     Dates: start: 20040701
  3. FOSAMAX [Concomitant]
  4. FOLIC ACID [Concomitant]
  5. CYTOTEC [Concomitant]
  6. ASPIRIN [Concomitant]
  7. ECOTRIN [Concomitant]
  8. LUMIGAN [Concomitant]
     Route: 047

REACTIONS (2)
  - CONDITION AGGRAVATED [None]
  - PSORIASIS [None]
